FAERS Safety Report 11433127 (Version 1)
Quarter: 2015Q3

REPORT INFORMATION
  Report Type: Report from Study
  Country: NL (occurrence: NL)
  Receive Date: 20150829
  Receipt Date: 20150829
  Transmission Date: 20151125
  Serious: Yes (Hospitalization)
  Sender: FDA-Public Use
  Company Number: NL-ROCHE-1618098

PATIENT
  Age: 48 Year
  Sex: Male
  Weight: 70 kg

DRUGS (8)
  1. PERTUZUMAB [Suspect]
     Active Substance: PERTUZUMAB
     Indication: OESOPHAGEAL CARCINOMA
     Dosage: DAY 1 AND DAY 22
     Route: 042
     Dates: start: 20150721, end: 20150721
  2. TRASTUZUMAB [Suspect]
     Active Substance: TRASTUZUMAB
     Dosage: MOST RECENT DOSE BEFORE EVENT: 166 MG
     Route: 042
     Dates: start: 20150721, end: 20150818
  3. PACLITAXEL. [Suspect]
     Active Substance: PACLITAXEL
     Indication: OESOPHAGEAL CARCINOMA
     Dosage: LAST DOSE PRIOR THE EVENT: 102 MG
     Route: 042
     Dates: start: 20150721, end: 20150728
  4. PACLITAXEL. [Suspect]
     Active Substance: PACLITAXEL
     Dosage: LAST DOSE PRIOR THE EVENT: 102 MG
     Route: 042
     Dates: start: 20150721, end: 20150818
  5. PERTUZUMAB [Suspect]
     Active Substance: PERTUZUMAB
     Dosage: DAY 1 AND DAY 22; MOST RECENT DOSE BEFORE EVENT: 840 MG
     Route: 042
     Dates: start: 20150721, end: 20150818
  6. TRASTUZUMAB [Suspect]
     Active Substance: TRASTUZUMAB
     Indication: OESOPHAGEAL CARCINOMA
     Dosage: MOST RECENT DOSE BEFORE EVENT: 166 MG
     Route: 042
     Dates: start: 20150721, end: 20150728
  7. CARBOPLATIN. [Suspect]
     Active Substance: CARBOPLATIN
     Dosage: LAST DOSE PRIOR TO THE EVENT: 290 MG
     Route: 042
     Dates: start: 20150721, end: 20150818
  8. CARBOPLATIN. [Suspect]
     Active Substance: CARBOPLATIN
     Indication: OESOPHAGEAL CARCINOMA
     Dosage: LAST DOSE PRIOR TO THE EVENT: 280 MG
     Route: 042
     Dates: start: 20150721, end: 20150728

REACTIONS (2)
  - Vomiting [Not Recovered/Not Resolved]
  - Haematemesis [Recovered/Resolved with Sequelae]

NARRATIVE: CASE EVENT DATE: 20150802
